FAERS Safety Report 5261457-X (Version None)
Quarter: 2007Q1

REPORT INFORMATION
  Report Type: 
  Country: None (occurrence: None)
  Receive Date: 20070307
  Receipt Date: 20070219
  Transmission Date: 20070707
  Serious: Yes (Life-Threatening)
  Sender: FDA-Public Use
  Company Number: 8022250

PATIENT
  Sex: Male

DRUGS (4)
  1. PREDNISOLONE [Suspect]
  2. SALBUTAMOL [Concomitant]
  3. BECLOMETHASONE DIPROPIONATE [Concomitant]
  4. IPRATROPIUM BROMIDE [Concomitant]

REACTIONS (1)
  - MELAENA [None]
